FAERS Safety Report 6434034-2 (Version None)
Quarter: 2009Q4

REPORT INFORMATION
  Report Type: 
  Country: None (occurrence: None)
  Receive Date: 20091109
  Receipt Date: 20091109
  Transmission Date: 20100525
  Serious: No
  Sender: FDA-Public Use
  Company Number: None

PATIENT
  Age: 89 Year
  Sex: Female
  Weight: 49.8957 kg

DRUGS (2)
  1. CYMBALTA [Suspect]
     Indication: DEPRESSION
     Dosage: 30 MG  1 NIGHTLY
     Dates: start: 20091003
  2. CYMBALTA [Suspect]
     Indication: DEPRESSION
     Dosage: 30 MG  1 NIGHTLY
     Dates: start: 20091020

REACTIONS (5)
  - ABDOMINAL DISCOMFORT [None]
  - HEADACHE [None]
  - NAUSEA [None]
  - PAIN [None]
  - VOMITING [None]
